FAERS Safety Report 4297646-0 (Version None)
Quarter: 2004Q1

REPORT INFORMATION
  Report Type: 
  Country: None (occurrence: None)
  Receive Date: 20040217
  Receipt Date: 20040217
  Transmission Date: 20041129
  Serious: Yes (Death)
  Sender: FDA-Public Use
  Company Number: None

PATIENT
  Sex: Female
  Weight: 38 kg

DRUGS (10)
  1. DAUNORUBICIN HCL [Suspect]
     Indication: ACUTE MYELOID LEUKAEMIA
     Dosage: 122MG QD INTRAVENOUS
     Route: 042
     Dates: start: 20040109, end: 20040111
  2. CYTARABINE [Suspect]
     Dosage: 135MG QD INTRAVENOUS
     Route: 042
     Dates: start: 20040109, end: 20040115
  3. TEQUIN [Concomitant]
  4. VALTREX [Concomitant]
  5. CEFIPIME [Concomitant]
  6. FLAGYL [Concomitant]
  7. VANCOMYCIN [Concomitant]
  8. LINEZOLID [Concomitant]
  9. DAPTOMYCIN [Concomitant]
  10. VORICONAZOLE [Concomitant]

REACTIONS (7)
  - BLOOD CULTURE POSITIVE [None]
  - CAECITIS [None]
  - FUNGAL INFECTION [None]
  - GLYCOPEPTIDE ANTIBIOTIC RESISTANT ENTEROCOCCAL INFECTION [None]
  - HYPOXIA [None]
  - PANCYTOPENIA [None]
  - PNEUMONIA FUNGAL [None]
